FAERS Safety Report 7281568-7 (Version None)
Quarter: 2011Q1

REPORT INFORMATION
  Report Type: 
  Country: None (occurrence: None)
  Receive Date: 20110208
  Receipt Date: 20110128
  Transmission Date: 20110831
  Serious: Yes (Other)
  Sender: FDA-Public Use
  Company Number: PHHY2011PT02018

PATIENT
  Age: 13 Year
  Sex: Female

DRUGS (3)
  1. CYCLOSPORINE [Suspect]
     Indication: DERMATITIS ATOPIC
     Route: 048
  2. FLOXACILLIN SODIUM [Concomitant]
  3. GENTAMICIN [Concomitant]

REACTIONS (7)
  - LIVER DISORDER [None]
  - ALANINE AMINOTRANSFERASE INCREASED [None]
  - BLOOD UREA INCREASED [None]
  - DRUG INTERACTION [None]
  - RENAL IMPAIRMENT [None]
  - ASPARTATE AMINOTRANSFERASE INCREASED [None]
  - HERPES VIRUS INFECTION [None]
